FAERS Safety Report 5331267-3 (Version None)
Quarter: 2007Q2

REPORT INFORMATION
  Report Type: 
  Country: None (occurrence: None)
  Receive Date: 20070301
  Receipt Date: 20060413
  Transmission Date: 20071010
  Serious: Yes (Other)
  Sender: FDA-Public Use
  Company Number: 2264

PATIENT
  Age: 23 Year
  Sex: Male
  Weight: 83.9154 kg

DRUGS (1)
  1. AMNESTEEM [Suspect]
     Indication: ACNE
     Dosage: 40 MG, QD, PO
     Route: 048
     Dates: start: 20060303, end: 20060324

REACTIONS (1)
  - FATIGUE [None]
